FAERS Safety Report 20455528 (Version 1)
Quarter: 2022Q1

REPORT INFORMATION
  Report Type: Report from Study
  Country: US (occurrence: US)
  Receive Date: 20220210
  Receipt Date: 20220210
  Transmission Date: 20220423
  Serious: Yes (Hospitalization)
  Sender: FDA-Public Use
  Company Number: US-BIOVITRUM-2021US10552

PATIENT
  Age: 28 Year
  Sex: Female

DRUGS (1)
  1. KINERET [Suspect]
     Active Substance: ANAKINRA
     Indication: Pericarditis constrictive
     Route: 058
     Dates: start: 20210113

REACTIONS (4)
  - COVID-19 [Unknown]
  - Blood test abnormal [Unknown]
  - Maternal exposure during pregnancy [Not Recovered/Not Resolved]
  - Off label use [Unknown]

NARRATIVE: CASE EVENT DATE: 20210113
